FAERS Safety Report 16868937 (Version 4)
Quarter: 2020Q2

REPORT INFORMATION
  Report Type: Report from Study
  Country: US (occurrence: US)
  Receive Date: 20190930
  Receipt Date: 20200406
  Transmission Date: 20200713
  Serious: Yes (Death, Hospitalization)
  Sender: FDA-Public Use
  Company Number: US-ACTELION-A-US2019-195306

PATIENT
  Age: 65 Year
  Sex: Female
  Weight: 115.65 kg

DRUGS (21)
  1. IRON [Concomitant]
     Active Substance: IRON
     Dosage: 65 MG, QD
     Dates: start: 2012
  2. FUROSEMIDE. [Concomitant]
     Active Substance: FUROSEMIDE
  3. MAGNESIUM SULFATE. [Concomitant]
     Active Substance: MAGNESIUM SULFATE
  4. MELATONIN [Concomitant]
     Active Substance: MELATONIN
  5. UPTRAVI [Suspect]
     Active Substance: SELEXIPAG
     Dosage: 800 MCG
     Route: 048
  6. UPTRAVI [Suspect]
     Active Substance: SELEXIPAG
     Dosage: 200 MCG AND 400MCG IN PM
     Route: 048
  7. FLECAINIDE [Concomitant]
     Active Substance: FLECAINIDE
     Dosage: 100 MG, BID
     Dates: start: 201908
  8. SINGULAIR [Concomitant]
     Active Substance: MONTELUKAST SODIUM
     Dosage: 10 MG, QD
  9. ACETAMINOFEN [Concomitant]
     Active Substance: ACETAMINOPHEN
  10. MUPIROCIN. [Concomitant]
     Active Substance: MUPIROCIN
  11. TREPROSTINIL. [Suspect]
     Active Substance: TREPROSTINIL
     Indication: PRODUCT USED FOR UNKNOWN INDICATION
     Route: 042
  12. XARELTO [Suspect]
     Active Substance: RIVAROXABAN
     Indication: ATRIAL FIBRILLATION
     Dosage: 20 MG, QD
     Route: 065
     Dates: start: 201702
  13. ADEMPAS [Concomitant]
     Active Substance: RIOCIGUAT
     Dosage: 2 MG, TID
  14. ACETATE D^ELLIPTINIUM [Concomitant]
  15. OPSUMIT [Suspect]
     Active Substance: MACITENTAN
     Indication: PULMONARY ARTERIAL HYPERTENSION
     Dosage: 10 MG, QD
     Route: 048
     Dates: start: 20190906, end: 20191205
  16. POTASSIUM [Concomitant]
     Active Substance: POTASSIUM
     Dosage: 20 MG, QD
     Dates: start: 20190823
  17. FERROUS SULFATE. [Concomitant]
     Active Substance: FERROUS SULFATE
  18. LIDOCAINE. [Concomitant]
     Active Substance: LIDOCAINE
  19. POTASSIUM CHLORIDE. [Concomitant]
     Active Substance: POTASSIUM CHLORIDE
  20. UPTRAVI [Suspect]
     Active Substance: SELEXIPAG
     Indication: PULMONARY ARTERIAL HYPERTENSION
     Dosage: 200 MCG
     Route: 048
  21. LASIX [Concomitant]
     Active Substance: FUROSEMIDE
     Dosage: 60 MG, BID
     Dates: start: 20190906

REACTIONS (31)
  - Anaemia [Not Recovered/Not Resolved]
  - Transfusion [Not Recovered/Not Resolved]
  - Right ventricular failure [Unknown]
  - Acute kidney injury [Unknown]
  - Diverticulum [Unknown]
  - Malaise [Unknown]
  - Pulmonary hypertension [Fatal]
  - Dyspnoea [Recovered/Resolved with Sequelae]
  - Melaena [Not Recovered/Not Resolved]
  - Swelling face [Unknown]
  - Atrial fibrillation [Unknown]
  - Acute respiratory failure [Not Recovered/Not Resolved]
  - Fatigue [Not Recovered/Not Resolved]
  - Haemorrhoids [Recovered/Resolved]
  - Headache [Unknown]
  - Cardiopulmonary failure [Fatal]
  - Atrial flutter [Unknown]
  - Dialysis [Unknown]
  - Haemoglobin decreased [Not Recovered/Not Resolved]
  - Fluid overload [Unknown]
  - General physical health deterioration [Unknown]
  - Condition aggravated [Fatal]
  - Haematocrit decreased [Not Recovered/Not Resolved]
  - Dyspnoea exertional [Not Recovered/Not Resolved]
  - Device related thrombosis [Unknown]
  - Asthenia [Not Recovered/Not Resolved]
  - Oedema peripheral [Unknown]
  - Gastrointestinal haemorrhage [Unknown]
  - Hypotension [Not Recovered/Not Resolved]
  - Palpitations [Not Recovered/Not Resolved]
  - Nasal congestion [Not Recovered/Not Resolved]

NARRATIVE: CASE EVENT DATE: 20190908
